FAERS Safety Report 19519163 (Version 1)
Quarter: 2021Q3

REPORT INFORMATION
  Report Type: Spontaneous
  Country: US (occurrence: US)
  Receive Date: 20210712
  Receipt Date: 20210712
  Transmission Date: 20211014
  Serious: No
  Sender: FDA-Public Use
  Company Number: None

PATIENT
  Age: 36 Year
  Sex: Female

DRUGS (1)
  1. CBD GUMMY BEAR [Suspect]
     Active Substance: CANNABIDIOL\HERBALS

REACTIONS (2)
  - Dizziness [None]
  - Lethargy [None]

NARRATIVE: CASE EVENT DATE: 20210709
